FAERS Safety Report 5515187-7 (Version None)
Quarter: 2007Q4

REPORT INFORMATION
  Report Type: 
  Country: None (occurrence: None)
  Receive Date: 20071113
  Receipt Date: 20070201
  Transmission Date: 20080405
  Serious: Yes (Hospitalization)
  Sender: FDA-Public Use
  Company Number: A0637979A

PATIENT
  Age: 75 Year
  Sex: Female

DRUGS (1)
  1. COREG [Suspect]
     Indication: MITRAL VALVE DISEASE
     Route: 065

REACTIONS (1)
  - HYPOTENSION [None]
